FAERS Safety Report 9467907 (Version 1)
Quarter: 2013Q3

REPORT INFORMATION
  Report Type: Spontaneous
  Country: US (occurrence: US)
  Receive Date: 20130821
  Receipt Date: 20130821
  Transmission Date: 20140515
  Serious: No
  Sender: FDA-Public Use
  Company Number: US-B.I. PHARMACEUTICALS,INC./RIDGEFIELD-2013-BI-25047BP

PATIENT
  Age: 78 Year
  Sex: Male
  Weight: 129 kg

DRUGS (2)
  1. SPIRIVA [Suspect]
     Indication: CARDIAC FAILURE CONGESTIVE
     Dosage: 18 MCG
     Route: 048
     Dates: start: 201307
  2. SPIRIVA [Suspect]
     Dosage: 18 MCG
     Route: 048
     Dates: start: 201307

REACTIONS (2)
  - Incorrect route of drug administration [Recovered/Resolved]
  - Off label use [Not Recovered/Not Resolved]
